FAERS Safety Report 8859456 (Version 1)
Quarter: 2012Q4

REPORT INFORMATION
  Report Type: Report from Study
  Country: ES (occurrence: ES)
  Receive Date: 20121024
  Receipt Date: 20121024
  Transmission Date: 20130627
  Serious: Yes (Death)
  Sender: FDA-Public Use
  Company Number: ES-PFIZER INC-2012262051

PATIENT
  Age: 15 Year
  Sex: Male

DRUGS (5)
  1. CEFEPIME HCL [Suspect]
     Dosage: UNK
  2. NIFEDIPINE [Suspect]
     Dosage: UNK
  3. LEVETIRACETAM [Suspect]
     Dosage: UNK
  4. CASPOFUNGIN [Suspect]
     Dosage: UNK
  5. BASILIXIMAB [Suspect]
     Dosage: UNK

REACTIONS (1)
  - Toxic epidermal necrolysis [Fatal]
